FAERS Safety Report 6067919-X (Version None)
Quarter: 2009Q1

REPORT INFORMATION
  Report Type: 
  Country: None (occurrence: None)
  Receive Date: 20090205
  Receipt Date: 20090127
  Transmission Date: 20090719
  Serious: Yes (Life-Threatening, Hospitalization)
  Sender: FDA-Public Use
  Company Number: GB-RANBAXY-2009RR-21517

PATIENT
  Age: 61 Year
  Sex: Male
  Weight: 67 kg

DRUGS (4)
  1. SERTRALINE [Suspect]
     Dosage: 3.1 G, UNK
  2. QUETIAPINE FUMARATE [Suspect]
     Dosage: 4.3 G, UNK
     Route: 048
  3. BENZODIAZEPINE [Concomitant]
  4. ACETAMINOPHEN [Concomitant]

REACTIONS (3)
  - COMA [None]
  - OVERDOSE [None]
  - SUICIDE ATTEMPT [None]
